FAERS Safety Report 6999527-8 (Version None)
Quarter: 2010Q3

REPORT INFORMATION
  Report Type: 
  Country: None (occurrence: None)
  Receive Date: 20100920
  Receipt Date: 20100723
  Transmission Date: 20110219
  Serious: Yes (Hospitalization)
  Sender: FDA-Public Use
  Company Number: US-ASTRAZENECA-2010SE34486

PATIENT
  Age: 545 Month
  Sex: Male
  Weight: 72.6 kg

DRUGS (5)
  1. SEROQUEL XR [Suspect]
     Indication: MAJOR DEPRESSION
     Route: 048
  2. BACTRIM [Suspect]
  3. HYZAAR [Suspect]
  4. VALIUM [Concomitant]
  5. INTUNIV [Concomitant]
     Indication: DEPRESSION

REACTIONS (1)
  - RENAL FAILURE [None]
